FAERS Safety Report 13075766 (Version 1)
Quarter: 2016Q4

REPORT INFORMATION
  Report Type: Spontaneous
  Country: US (occurrence: US)
  Receive Date: 20161230
  Receipt Date: 20161230
  Transmission Date: 20170207
  Serious: No
  Sender: FDA-Public Use
  Company Number: None

PATIENT
  Age: 38 Year
  Sex: Female
  Weight: 72 kg

DRUGS (6)
  1. AMBIEN [Concomitant]
     Active Substance: ZOLPIDEM TARTRATE
  2. ZYRTEC [Suspect]
     Active Substance: CETIRIZINE HYDROCHLORIDE
     Indication: MULTIPLE ALLERGIES
     Dosage: ?          QUANTITY:1 TABLET(S);?
     Route: 048
     Dates: start: 20140501, end: 20161226
  3. MULTIVITAMIN [Concomitant]
     Active Substance: VITAMINS
  4. XANAX [Concomitant]
     Active Substance: ALPRAZOLAM
  5. PROBIOTICS [Concomitant]
     Active Substance: PROBIOTICS NOS
  6. OMEGA 3 [Concomitant]
     Active Substance: OMEGA-3 FATTY ACIDS

REACTIONS (3)
  - Urticaria [None]
  - Therapy cessation [None]
  - Pruritus generalised [None]

NARRATIVE: CASE EVENT DATE: 20161226
